FAERS Safety Report 15557525 (Version 2)
Quarter: 2019Q1

REPORT INFORMATION
  Report Type: Report from Study
  Country: US (occurrence: US)
  Receive Date: 20181027
  Receipt Date: 20190215
  Transmission Date: 20190417
  Serious: Yes (Life-Threatening, Hospitalization, Other)
  Sender: FDA-Public Use
  Company Number: US-ROCHE-2204702

PATIENT
  Age: 38 Year
  Sex: Female
  Weight: 130.5 kg

DRUGS (7)
  1. PRIMROSE OIL [Concomitant]
  2. OCREVUS [Suspect]
     Active Substance: OCRELIZUMAB
     Indication: PRIMARY PROGRESSIVE MULTIPLE SCLEROSIS
     Dosage: 300MG IV + 300MG IV ABOUT 2 WKS APART
     Route: 042
     Dates: start: 201710
  3. ROPINIROLE. [Concomitant]
     Active Substance: ROPINIROLE
     Route: 065
  4. BIOTIN [Concomitant]
     Active Substance: BIOTIN
  5. BACLOFEN. [Concomitant]
     Active Substance: BACLOFEN
     Route: 065
  6. FISH OIL [Concomitant]
     Active Substance: FISH OIL
  7. GARLIC. [Concomitant]
     Active Substance: GARLIC

REACTIONS (18)
  - Escherichia infection [Recovered/Resolved]
  - Joint swelling [Recovered/Resolved]
  - Multiple sclerosis relapse [Recovered/Resolved]
  - Staphylococcal infection [Unknown]
  - Necrotising fasciitis [Recovered/Resolved]
  - Acne [Recovered/Resolved]
  - Swelling [Recovered/Resolved]
  - B-lymphocyte count decreased [Unknown]
  - Immunosuppression [Unknown]
  - Wound complication [Unknown]
  - Sepsis [Unknown]
  - Abdominal distension [Recovered/Resolved]
  - Nerve injury [Not Recovered/Not Resolved]
  - Sensory loss [Not Recovered/Not Resolved]
  - Hypertrophic cardiomyopathy [Unknown]
  - Viral infection [Unknown]
  - Cellulitis [Recovered/Resolved]
  - Skin exfoliation [Unknown]

NARRATIVE: CASE EVENT DATE: 201801
